FAERS Safety Report 16670202 (Version 2)
Quarter: 2019Q3

REPORT INFORMATION
  Report Type: Spontaneous
  Country: DE (occurrence: DE)
  Receive Date: 20190805
  Receipt Date: 20190925
  Transmission Date: 20191004
  Serious: Yes (Hospitalization, Other)
  Sender: FDA-Public Use
  Company Number: DE-GILEAD-2019-0421792

PATIENT
  Age: 72 Year
  Sex: Male

DRUGS (6)
  1. RICE [CARBOPLATIN;ETOPOSIDE;IFOSFAMIDE;RITUXIMAB] [Concomitant]
     Indication: DIFFUSE LARGE B-CELL LYMPHOMA
  2. CISPLATIN;CYTARABINE;DEXAMETHASONE;RITUXIMAB [Concomitant]
  3. VENETOCLAX. [Concomitant]
     Active Substance: VENETOCLAX
  4. CYCLOPHOSPHAMIDE. [Suspect]
     Active Substance: CYCLOPHOSPHAMIDE
     Indication: BONE MARROW CONDITIONING REGIMEN
     Dosage: UNK
     Route: 065
     Dates: start: 20190517, end: 20190519
  5. FLUDARABINE [Suspect]
     Active Substance: FLUDARABINE PHOSPHATE
     Indication: BONE MARROW CONDITIONING REGIMEN
     Dosage: UNK
     Route: 065
     Dates: start: 20190517, end: 20190519
  6. YESCARTA [Suspect]
     Active Substance: AXICABTAGENE CILOLEUCEL
     Indication: DIFFUSE LARGE B-CELL LYMPHOMA
     Dosage: UNK
     Route: 042
     Dates: start: 20190522, end: 20190522

REACTIONS (4)
  - Cytokine release syndrome [Recovered/Resolved]
  - Neurotoxicity [Recovered/Resolved]
  - Disease recurrence [Not Recovered/Not Resolved]
  - Infection [Recovered/Resolved]

NARRATIVE: CASE EVENT DATE: 20190601
